FAERS Safety Report 4376574-6 (Version None)
Quarter: 2004Q2

REPORT INFORMATION
  Report Type: 
  Country: None (occurrence: None)
  Receive Date: 20040614
  Receipt Date: 20040604
  Transmission Date: 20050107
  Serious: Yes (Death, Hospitalization)
  Sender: FDA-Public Use
  Company Number: FR-JNJFOC-20040200984

PATIENT
  Age: 75 Year
  Sex: Female
  Weight: 40 kg

DRUGS (9)
  1. REMICADE [Suspect]
     Route: 042
  2. REMICADE [Suspect]
     Indication: RHEUMATOID ARTHRITIS
     Route: 042
  3. HUMIRA [Suspect]
     Indication: DRUG USE FOR UNKNOWN INDICATION
     Route: 058
  4. CORTANCYL [Concomitant]
     Indication: RHEUMATOID ARTHRITIS
  5. OROCAL D3 [Concomitant]
  6. OROCAL D3 [Concomitant]
     Indication: OSTEOPOROSIS
  7. MOPRAL [Concomitant]
     Indication: ULCER
  8. ARAVA [Concomitant]
     Indication: RHEUMATOID ARTHRITIS
  9. PREDNISOLONE [Concomitant]
     Route: 049

REACTIONS (14)
  - COMA [None]
  - DISSEMINATED TUBERCULOSIS [None]
  - FAECAL INCONTINENCE [None]
  - HERPES SIMPLEX [None]
  - HYPERAESTHESIA [None]
  - HYPERCALCAEMIA [None]
  - INFLAMMATION [None]
  - NOCTURIA [None]
  - PLEURAL EFFUSION [None]
  - PULMONARY EMBOLISM [None]
  - PULMONARY TUBERCULOSIS [None]
  - TUBERCULOSIS LIVER [None]
  - URINARY INCONTINENCE [None]
  - WEIGHT DECREASED [None]
